FAERS Safety Report 13778959 (Version 3)
Quarter: 2017Q4

REPORT INFORMATION
  Report Type: Spontaneous
  Country: US (occurrence: US)
  Receive Date: 20170721
  Receipt Date: 20171217
  Transmission Date: 20180320
  Serious: No
  Sender: FDA-Public Use
  Company Number: US-LUNDBECK-DKLU2032571

PATIENT
  Sex: Female

DRUGS (2)
  1. NORTHERA [Suspect]
     Active Substance: DROXIDOPA
     Indication: PRODUCT USED FOR UNKNOWN INDICATION
     Route: 065
     Dates: start: 201605
  2. NORTHERA [Suspect]
     Active Substance: DROXIDOPA
     Dosage: B, COMPLETED/UNKNOWN
     Route: 065

REACTIONS (21)
  - Drug dose omission [Unknown]
  - Chest pain [Unknown]
  - Syncope [Unknown]
  - Fatigue [Unknown]
  - Dizziness [Unknown]
  - Condition aggravated [Unknown]
  - Joint range of motion decreased [Unknown]
  - Pain [Unknown]
  - Dyspnoea [Unknown]
  - Constipation [Unknown]
  - Nausea [Unknown]
  - Diarrhoea [Unknown]
  - Insomnia [Unknown]
  - Abdominal pain [Unknown]
  - Hypotension [Unknown]
  - Migraine [Unknown]
  - Malaise [Unknown]
  - Muscle spasms [Unknown]
  - Palpitations [Unknown]
  - Feeling abnormal [Unknown]
  - Presyncope [Unknown]

NARRATIVE: CASE EVENT DATE: 2017
